FAERS Safety Report 7418063-8 (Version None)
Quarter: 2011Q2

REPORT INFORMATION
  Report Type: 
  Country: None (occurrence: None)
  Receive Date: 20110415
  Receipt Date: 20110405
  Transmission Date: 20111010
  Serious: Yes (Other)
  Sender: FDA-Public Use
  Company Number: DE-ROCHE-771459

PATIENT
  Age: 68 Year
  Sex: Female

DRUGS (1)
  1. ROACTEMRA [Suspect]
     Route: 042
     Dates: start: 20110304

REACTIONS (2)
  - ASTHMA [None]
  - PNEUMONIA [None]
